FAERS Safety Report 12172573 (Version 1)
Quarter: 2016Q1

REPORT INFORMATION
  Report Type: Spontaneous
  Country: FR (occurrence: FR)
  Receive Date: 20160311
  Receipt Date: 20160311
  Transmission Date: 20160526
  Serious: Yes (Other)
  Sender: FDA-Public Use
  Company Number: FR-MYLANLABS-2016M1010504

PATIENT

DRUGS (1)
  1. ISOTRETINOIN [Suspect]
     Active Substance: ISOTRETINOIN
     Indication: ACNE CONGLOBATA
     Dosage: SYSTEMIC 0.5MG/KG/DAY UP TO A CUMULATIVE DOSE OF 140 MG/KG OVER 12 MONTHS
     Route: 065

REACTIONS (2)
  - Autoimmune hypothyroidism [Recovering/Resolving]
  - Cheilitis [Unknown]
